FAERS Safety Report 8325069-3 (Version None)
Quarter: 2012Q2

REPORT INFORMATION
  Report Type: 
  Country: None (occurrence: None)
  Receive Date: 20120501
  Receipt Date: 20120423
  Transmission Date: 20120825
  Serious: Yes (Other)
  Sender: FDA-Public Use
  Company Number: PHEH2012US008705

PATIENT
  Sex: Female

DRUGS (2)
  1. SANDOSTATIN LAR [Suspect]
     Dosage: 50 MG, EVERY 25 DAYS
     Route: 030
  2. SANDOSTATIN LAR [Suspect]
     Indication: CARCINOID SYNDROME
     Dosage: 40 MG, EVERY 25 DAYS
     Route: 030

REACTIONS (5)
  - BONE PAIN [None]
  - DIARRHOEA [None]
  - CONSTIPATION [None]
  - DRUG LEVEL DECREASED [None]
  - FAT NECROSIS [None]
